FAERS Safety Report 5910529-2 (Version None)
Quarter: 2008Q4

REPORT INFORMATION
  Report Type: 
  Country: None (occurrence: None)
  Receive Date: 20081007
  Receipt Date: 20080226
  Transmission Date: 20090506
  Serious: No
  Sender: FDA-Public Use
  Company Number: US-ASTRAZENECA-2008UW04050

PATIENT
  Age: 71 Year
  Sex: Female

DRUGS (5)
  1. ARIMIDEX [Suspect]
     Indication: BREAST CANCER
     Route: 048
     Dates: start: 20080201, end: 20080201
  2. ARIMIDEX [Suspect]
     Route: 048
     Dates: start: 20080201, end: 20080201
  3. CRESTOR [Concomitant]
  4. VITAMINS [Concomitant]
  5. BENACAR [Concomitant]

REACTIONS (1)
  - HEART RATE INCREASED [None]
